FAERS Safety Report 4332520-2 (Version None)
Quarter: 2004Q2

REPORT INFORMATION
  Report Type: 
  Country: None (occurrence: None)
  Receive Date: 20040401
  Receipt Date: 20040316
  Transmission Date: 20050107
  Serious: Yes (Death)
  Sender: FDA-Public Use
  Company Number: 205560

PATIENT
  Age: 61 Year
  Sex: Female
  Weight: 55 kg

DRUGS (17)
  1. HERCEPTIN [Suspect]
     Indication: BREAST CANCER METASTATIC
     Dosage: 200 MG, SINGLE, INTRAVENOUS
     Route: 042
     Dates: start: 20040216, end: 20040216
  2. HERCEPTIN [Suspect]
     Dosage: 100 MG, INTRAVENOUS
     Route: 042
     Dates: start: 20040224, end: 20040224
  3. TAXOL [Suspect]
     Indication: BREAST CANCER METASTATIC
     Dosage: 100 MG, 1/WEEK, INTRAVENOUS
     Route: 042
     Dates: start: 20040113
  4. DECADRON PHOSPHATE [Suspect]
     Indication: PREMEDICATION
     Dosage: 8 MG, INTRAVENOUS
     Route: 042
     Dates: start: 20040113, end: 20040113
  5. DECADRON PHOSPHATE [Suspect]
     Dosage: 4 MG,
     Dates: start: 20040120, end: 20040224
  6. ZANTAC [Concomitant]
  7. RESTAMIN (CHLORPHENIRAMINE MALEATE) [Concomitant]
  8. NOVALDEX (TAMOXIFEN CITRATE) [Concomitant]
  9. HYSRON (MEDROXYPROGESTERONE ACETATE) [Concomitant]
  10. ASPIRIN [Concomitant]
  11. LENDORM [Concomitant]
  12. BERIZYM [Concomitant]
  13. MAGNESIUM OXIDE (MAGNESIUM OXIDE) [Concomitant]
  14. LACTOBACILLUS ACIDOPHILUS (LACTOBACILLUS ACIDOPHILUS) [Concomitant]
  15. GLIMICRON (GLICLAZIDE) [Concomitant]
  16. LOXONIN (LOXOPROFEN SODIUM) [Concomitant]
  17. FLUVOXAMINE MALEATE [Concomitant]

REACTIONS (9)
  - ASTHENIA [None]
  - BLOOD PRESSURE DECREASED [None]
  - BONE MARROW DEPRESSION [None]
  - C-REACTIVE PROTEIN INCREASED [None]
  - DRUG INEFFECTIVE [None]
  - HAEMATURIA [None]
  - MALAISE [None]
  - RENAL FAILURE ACUTE [None]
  - WHITE BLOOD CELL COUNT DECREASED [None]
